FAERS Safety Report 4728180-9 (Version None)
Quarter: 2005Q3

REPORT INFORMATION
  Report Type: 
  Country: None (occurrence: None)
  Receive Date: 20050727
  Receipt Date: 20050711
  Transmission Date: 20060218
  Serious: Yes (Hospitalization)
  Sender: FDA-Public Use
  Company Number: 215983

PATIENT
  Age: 61 Year
  Sex: Female
  Weight: 81 kg

DRUGS (5)
  1. HERCEPTIN [Suspect]
     Indication: BREAST CANCER METASTATIC
     Dosage: 4 + 2MG/KG, SINGLE,  - SEE IMAGE
     Route: 042
     Dates: start: 20031006, end: 20031006
  2. HERCEPTIN [Suspect]
     Indication: BREAST CANCER METASTATIC
     Dosage: 4 + 2MG/KG, SINGLE,  - SEE IMAGE
     Route: 042
     Dates: start: 20031006, end: 20031014
  3. HERCEPTIN [Suspect]
     Indication: BREAST CANCER METASTATIC
     Dosage: 4 + 2MG/KG, SINGLE,  - SEE IMAGE
     Route: 042
     Dates: start: 20031013, end: 20041230
  4. DOCETAXEL                   (DOCETAXEL) [Suspect]
     Indication: BREAST CANCER METASTATIC
     Dosage: 100 MG/M2, Q3W, INTRAVENOUS
     Route: 042
     Dates: start: 20031006
  5. COAPROVEL                      (HYDROCHLOROTHIAZIDE, IRBESARTAN) [Concomitant]

REACTIONS (5)
  - HEADACHE [None]
  - NAUSEA [None]
  - NEUROLOGICAL SYMPTOM [None]
  - VERTIGO [None]
  - VOMITING [None]
